FAERS Safety Report 5673600-9 (Version None)
Quarter: 2008Q2

REPORT INFORMATION
  Report Type: 
  Country: None (occurrence: None)
  Receive Date: 20080225
  Receipt Date: 20071017
  Transmission Date: 20081010
  Serious: Yes (Other)
  Sender: FDA-Public Use
  Company Number: WAES 0710USA03659

PATIENT
  Age: 61 Year
  Sex: Female

DRUGS (1)
  1. ZOCOR [Suspect]
     Dosage: PO
     Route: 048
     Dates: start: 19970101

REACTIONS (1)
  - PANCREATITIS [None]
